FAERS Safety Report 7798807-6 (Version None)
Quarter: 2011Q4

REPORT INFORMATION
  Report Type: 
  Country: None (occurrence: None)
  Receive Date: 20111005
  Receipt Date: 20111005
  Transmission Date: 20120403
  Serious: Yes (Other)
  Sender: FDA-Public Use
  Company Number: None

PATIENT
  Sex: Female
  Weight: 72.5755 kg

DRUGS (1)
  1. WELLBUTRIN SR [Suspect]
     Dosage: 150MG THREE @ AM PO
     Route: 048

REACTIONS (2)
  - CONVULSION [None]
  - PRODUCT FORMULATION ISSUE [None]
